FAERS Safety Report 23384412 (Version 1)
Quarter: 2024Q1

REPORT INFORMATION
  Report Type: Report from Study
  Country: US (occurrence: US)
  Receive Date: 20240109
  Receipt Date: 20240109
  Transmission Date: 20240410
  Serious: No
  Sender: FDA-Public Use
  Company Number: US-ALXN-A202312309

PATIENT
  Sex: Female

DRUGS (1)
  1. STRENSIQ [Suspect]
     Active Substance: ASFOTASE ALFA
     Indication: Product used for unknown indication
     Dosage: UNK
     Route: 065

REACTIONS (11)
  - Lip swelling [Unknown]
  - Lip exfoliation [Unknown]
  - Lip erythema [Unknown]
  - Lip pruritus [Unknown]
  - Erythema [Unknown]
  - Peripheral swelling [Unknown]
  - Eye swelling [Unknown]
  - Injection site pain [Unknown]
  - Injection site discolouration [Unknown]
  - Injection site atrophy [Unknown]
  - Injection site mass [Unknown]

NARRATIVE: CASE EVENT DATE: 20230101
